FAERS Safety Report 17843300 (Version 1)
Quarter: 2020Q2

REPORT INFORMATION
  Report Type: Spontaneous
  Country: IT (occurrence: IT)
  Receive Date: 20200530
  Receipt Date: 20200530
  Transmission Date: 20200714
  Serious: Yes (Hospitalization)
  Sender: FDA-Public Use
  Company Number: NVSC2020IT148752

PATIENT
  Age: 77 Year
  Sex: Female

DRUGS (1)
  1. CEFTRIAXONE. [Suspect]
     Active Substance: CEFTRIAXONE
     Indication: RESPIRATORY TRACT INFECTION
     Dosage: 2 G, TOTAL
     Route: 042
     Dates: start: 20191227, end: 20191227

REACTIONS (5)
  - Hypotension [Recovering/Resolving]
  - Anaphylactic shock [Recovering/Resolving]
  - Erythema [Recovering/Resolving]
  - Tachycardia [Recovering/Resolving]
  - Bronchostenosis [Recovering/Resolving]

NARRATIVE: CASE EVENT DATE: 20191227
